FAERS Safety Report 6835506-9 (Version None)
Quarter: 2010Q3

REPORT INFORMATION
  Report Type: 
  Country: None (occurrence: None)
  Receive Date: 20100713
  Receipt Date: 20100629
  Transmission Date: 20110219
  Serious: Yes (Other)
  Sender: FDA-Public Use
  Company Number: PHHY2010US42871

PATIENT
  Sex: Female

DRUGS (8)
  1. RECLAST [Suspect]
     Dosage: UNK
     Dates: start: 20090901
  2. FOSAMAX [Suspect]
     Dosage: 70 MG
     Dates: end: 20090601
  3. FOSAMAX PLUS D [Suspect]
  4. LISINOPRIL [Concomitant]
     Dosage: 20 MG
  5. IRON [Concomitant]
     Dosage: TWICE A DAY
  6. ASPIRIN [Concomitant]
     Dosage: 21 MG
  7. FISH OIL [Concomitant]
  8. VITAMIN D [Concomitant]
     Dosage: 3000 IU

REACTIONS (4)
  - BLOOD PRESSURE INCREASED [None]
  - COELIAC DISEASE [None]
  - DIARRHOEA [None]
  - HYPERTHYROIDISM [None]
